FAERS Safety Report 4528833-1 (Version None)
Quarter: 2004Q4

REPORT INFORMATION
  Report Type: 
  Country: None (occurrence: None)
  Receive Date: 20041216
  Receipt Date: 20041208
  Transmission Date: 20050328
  Serious: Yes (Other)
  Sender: FDA-Public Use
  Company Number: AU-GLAXOSMITHKLINE-B0361828A

PATIENT
  Age: 38 Year
  Sex: Female

DRUGS (4)
  1. ZYBAN [Suspect]
     Route: 065
     Dates: start: 20041124
  2. HALDOL DECANOATE [Concomitant]
     Indication: SCHIZOPHRENIA
     Dates: start: 20041203
  3. ARTANE [Concomitant]
     Indication: RESTLESSNESS
     Dates: start: 20041203
  4. TEGRETOL [Concomitant]
     Route: 065

REACTIONS (6)
  - AGITATION [None]
  - DEPRESSION [None]
  - FEELING OF DESPAIR [None]
  - RESTLESSNESS [None]
  - SCHIZOPHRENIA [None]
  - TEARFULNESS [None]
